FAERS Safety Report 9729497 (Version 1)
Quarter: 2013Q4

REPORT INFORMATION
  Report Type: Spontaneous
  Country: US (occurrence: US)
  Receive Date: 20131204
  Receipt Date: 20131204
  Transmission Date: 20140711
  Serious: No
  Sender: FDA-Public Use
  Company Number: US-GILEAD-2009-0021702

PATIENT
  Sex: Female
  Weight: 68.04 kg

DRUGS (11)
  1. LETAIRIS [Suspect]
     Indication: PULMONARY ARTERIAL HYPERTENSION
     Route: 048
     Dates: start: 20080623
  2. DIOVAN HCT [Concomitant]
  3. FUROSEMIDE [Concomitant]
  4. HYDROCHLOROTHIAZIDE [Concomitant]
  5. REVATIO [Concomitant]
  6. PROTONIX [Concomitant]
  7. LEVOTHYROXINE [Concomitant]
  8. ALPRAZOLAM [Concomitant]
  9. TYLENOL-CODEINE [Concomitant]
  10. FOLIC ACID [Concomitant]
  11. VITAMIN B12 [Concomitant]

REACTIONS (1)
  - Pruritus [Unknown]
